FAERS Safety Report 8428176-X (Version None)
Quarter: 2012Q2

REPORT INFORMATION
  Report Type: 
  Country: None (occurrence: None)
  Receive Date: 20120611
  Receipt Date: 20120606
  Transmission Date: 20120825
  Serious: No
  Sender: FDA-Public Use
  Company Number: US-PFIZER INC-2012137039

PATIENT
  Sex: Female

DRUGS (1)
  1. LYRICA [Suspect]
     Indication: DIABETIC NEUROPATHY
     Dosage: UNK

REACTIONS (5)
  - WEIGHT INCREASED [None]
  - DRUG INEFFECTIVE [None]
  - EMOTIONAL DISORDER [None]
  - SWELLING [None]
  - OEDEMA [None]
